FAERS Safety Report 6024855-2 (Version None)
Quarter: 2008Q4

REPORT INFORMATION
  Report Type: 
  Country: None (occurrence: None)
  Receive Date: 20081231
  Receipt Date: 20081225
  Transmission Date: 20090506
  Serious: Yes (Hospitalization)
  Sender: FDA-Public Use
  Company Number: JP-ASTRAZENECA-2008AP08835

PATIENT
  Age: 23 Year
  Sex: Female
  Weight: 55 kg

DRUGS (11)
  1. SEROQUEL [Suspect]
     Dosage: DOSE AT OVERDOSE UNKNOWN
     Route: 048
  2. LENDORMIN [Suspect]
     Route: 048
  3. EVAMYL [Suspect]
     Route: 048
  4. SILECE [Suspect]
     Route: 048
  5. HALCION [Suspect]
     Route: 048
  6. RIVOTRIL [Suspect]
     Route: 048
  7. LIMAS [Suspect]
     Route: 048
  8. BESLIN [Suspect]
     Route: 048
  9. LUVOX [Suspect]
     Route: 048
  10. CARTEOLOL HYDROCHLORIDE [Concomitant]
     Route: 048
  11. LOXONIN [Concomitant]
     Route: 048

REACTIONS (2)
  - OVERDOSE [None]
  - THERAPEUTIC AGENT TOXICITY [None]
